FAERS Safety Report 10057113 (Version 1)
Quarter: 2014Q2

REPORT INFORMATION
  Report Type: Spontaneous
  Country: US (occurrence: US)
  Receive Date: 20140403
  Receipt Date: 20140403
  Transmission Date: 20141212
  Serious: Yes (Hospitalization, Other)
  Sender: FDA-Public Use
  Company Number: US-B.I. PHARMACEUTICALS,INC./RIDGEFIELD-2014-BI-14238BP

PATIENT
  Sex: Female
  Weight: 61 kg

DRUGS (1)
  1. COMBIVENT [Suspect]
     Indication: ASTHMA
     Dosage: STRENGTH: 18 MCG / 103 MCG; DAILY DOSE: 108 MCG/618 MCG
     Route: 055
     Dates: start: 1996, end: 201401

REACTIONS (4)
  - Sinusitis [Recovered/Resolved]
  - Macular degeneration [Not Recovered/Not Resolved]
  - Blindness [Recovered/Resolved]
  - Off label use [Unknown]
